FAERS Safety Report 6668456-1 (Version None)
Quarter: 2010Q2

REPORT INFORMATION
  Report Type: 
  Country: None (occurrence: None)
  Receive Date: 20100402
  Receipt Date: 20100322
  Transmission Date: 20101027
  Serious: Yes (Hospitalization, Other)
  Sender: FDA-Public Use
  Company Number: 100324-0000278

PATIENT
  Age: 34 Month
  Sex: Male
  Weight: 15.4223 kg

DRUGS (3)
  1. SABRIL [Suspect]
     Indication: INFANTILE SPASMS
     Dosage: 1500 MG; BID; PO
     Route: 048
  2. ACTH [Concomitant]
  3. DEPAKOTE [Concomitant]

REACTIONS (10)
  - ABASIA [None]
  - CONDITION AGGRAVATED [None]
  - CONVULSION [None]
  - DYSKINESIA [None]
  - ENZYME ABNORMALITY [None]
  - FEAR [None]
  - LIVER DISORDER [None]
  - PLATELET COUNT ABNORMAL [None]
  - SPEECH DISORDER [None]
  - VIRAL INFECTION [None]
